FAERS Safety Report 11656106 (Version 2)
Quarter: 2015Q4

REPORT INFORMATION
  Report Type: Spontaneous
  Country: US (occurrence: US)
  Receive Date: 20151023
  Receipt Date: 20151027
  Transmission Date: 20160304
  Serious: Yes (Hospitalization, Other)
  Sender: FDA-Public Use
  Company Number: US-PFIZER INC-2015350136

PATIENT
  Age: 57 Year
  Sex: Male

DRUGS (1)
  1. NEURONTIN [Suspect]
     Active Substance: GABAPENTIN
     Indication: DIABETIC NEUROPATHY
     Dosage: 2 OR 3 TIMES A DAY
     Route: 048
     Dates: end: 201401

REACTIONS (10)
  - Vascular rupture [Unknown]
  - Foot fracture [Unknown]
  - Insomnia [Unknown]
  - Drug ineffective for unapproved indication [Unknown]
  - Platelet count decreased [Unknown]
  - Transient ischaemic attack [Unknown]
  - Frostbite [Unknown]
  - Tibia fracture [Unknown]
  - Red blood cell count decreased [Unknown]
  - Wound infection staphylococcal [Unknown]

NARRATIVE: CASE EVENT DATE: 201302
